FAERS Safety Report 9772323 (Version 1)
Quarter: 2013Q4

REPORT INFORMATION
  Report Type: Spontaneous
  Country: US (occurrence: US)
  Receive Date: 20131219
  Receipt Date: 20131219
  Transmission Date: 20140711
  Serious: Yes (Other)
  Sender: FDA-Public Use
  Company Number: PHEH2013US025861

PATIENT
  Sex: Male

DRUGS (6)
  1. DIOVAN [Suspect]
     Dosage: 160 MG, QD
     Route: 048
  2. DIOVAN [Suspect]
     Dosage: 160 MG, QD
     Route: 048
  3. AMLODIPINE [Suspect]
  4. MELOXICAM [Suspect]
     Dosage: 15 MG, UNK
  5. LEVOTHYROXINE [Concomitant]
  6. CHOLESTEROL [Concomitant]

REACTIONS (5)
  - Blood pressure decreased [Unknown]
  - Syncope [Unknown]
  - Malaise [Unknown]
  - Cough [Unknown]
  - Blood pressure fluctuation [Unknown]
